FAERS Safety Report 15687385 (Version 3)
Quarter: 2019Q4

REPORT INFORMATION
  Report Type: Report from Study
  Country: US (occurrence: US)
  Receive Date: 20181205
  Receipt Date: 20191014
  Transmission Date: 20200122
  Serious: Yes (Hospitalization, Other)
  Sender: FDA-Public Use
  Company Number: US-BRISTOL-MYERS SQUIBB COMPANY-BMS-2018-106743

PATIENT
  Age: 68 Year
  Sex: Male

DRUGS (5)
  1. NIVOLUMAB [Suspect]
     Active Substance: NIVOLUMAB
     Indication: TRANSITIONAL CELL CARCINOMA
     Dosage: 360 MG, Q3WK
     Route: 042
     Dates: start: 20181023, end: 20181113
  2. AMLODIPINE [Concomitant]
     Active Substance: AMLODIPINE BESYLATE
     Indication: HYPERTENSION
     Dosage: 5 MILLIGRAM, QD
     Route: 048
     Dates: start: 20180903
  3. TYLENOL [Concomitant]
     Active Substance: ACETAMINOPHEN
     Indication: PYREXIA
     Dosage: UNK
     Route: 065
     Dates: start: 20181113
  4. BEMPEGALDESLEUKIN [Suspect]
     Active Substance: BEMPEGALDESLEUKIN
     Indication: TRANSITIONAL CELL CARCINOMA
     Dosage: 0.006 MG/KG, Q3WK
     Route: 042
     Dates: start: 20181023, end: 20181113
  5. ASPRIN [Concomitant]
     Active Substance: ASPIRIN
     Indication: ANTIINFLAMMATORY THERAPY
     Dosage: 81 MILLIGRAM, QD
     Route: 048
     Dates: start: 20180724

REACTIONS (3)
  - Urinary tract infection [Not Recovered/Not Resolved]
  - Autoimmune nephritis [Recovered/Resolved]
  - Acute kidney injury [Recovered/Resolved]

NARRATIVE: CASE EVENT DATE: 20181026
